FAERS Safety Report 5299992-0 (Version None)
Quarter: 2007Q2

REPORT INFORMATION
  Report Type: 
  Country: None (occurrence: None)
  Receive Date: 20070417
  Receipt Date: 20070405
  Transmission Date: 20071010
  Serious: Yes (Other)
  Sender: FDA-Public Use
  Company Number: US-PFIZER INC-2007010918

PATIENT
  Sex: Female
  Weight: 121.1 kg

DRUGS (2)
  1. DOSTINEX [Suspect]
     Indication: PITUITARY TUMOUR
  2. SYNTHROID [Suspect]
     Indication: HYPOTHYROIDISM

REACTIONS (5)
  - CARDIAC DISORDER [None]
  - FEELING ABNORMAL [None]
  - OBESITY [None]
  - OEDEMA [None]
  - PITUITARY TUMOUR RECURRENT [None]
